FAERS Safety Report 18745458 (Version 1)
Quarter: 2021Q1

REPORT INFORMATION
  Report Type: Spontaneous
  Country: US (occurrence: US)
  Receive Date: 20210115
  Receipt Date: 20210115
  Transmission Date: 20210419
  Serious: No
  Sender: FDA-Public Use
  Company Number: US-APRECIA PHARMACEUTICALS-APRE20210003

PATIENT
  Age: 15 Year
  Sex: Male

DRUGS (1)
  1. SPRITAM [Suspect]
     Active Substance: LEVETIRACETAM
     Indication: PARTIAL SEIZURES WITH SECONDARY GENERALISATION
     Dosage: 500 MG
     Route: 048

REACTIONS (4)
  - Wrong technique in product usage process [None]
  - Incorrect dose administered [Not Recovered/Not Resolved]
  - Product physical issue [None]
  - Discomfort [Not Recovered/Not Resolved]

NARRATIVE: CASE EVENT DATE: 2020
